FAERS Safety Report 9938589 (Version 2)
Quarter: 2016Q2

REPORT INFORMATION
  Report Type: Report from Study
  Country: US (occurrence: US)
  Receive Date: 20140303
  Receipt Date: 20160415
  Transmission Date: 20160815
  Serious: Yes (Other)
  Sender: FDA-Public Use
  Company Number: US-ROCHE-1331427

PATIENT
  Sex: Male

DRUGS (5)
  1. LUCENTIS [Suspect]
     Active Substance: RANIBIZUMAB
     Indication: RETINAL DEGENERATION
     Route: 050
  2. XYLOCAINE [Concomitant]
     Active Substance: LIDOCAINE HYDROCHLORIDE
     Route: 065
  3. POLYTRIM [Concomitant]
     Active Substance: POLYMYXIN B SULFATE\TRIMETHOPRIM SULFATE
     Dosage: TO AFFECTED EYE X4 DAYS
     Route: 047
  4. LUCENTIS [Suspect]
     Active Substance: RANIBIZUMAB
     Indication: RETINAL NEOVASCULARISATION
  5. BETADINE [Concomitant]
     Active Substance: POVIDONE-IODINE
     Route: 061

REACTIONS (5)
  - Pain [Unknown]
  - Blindness [Unknown]
  - Visual field defect [Unknown]
  - Chorioretinal atrophy [Unknown]
  - Vitreous floaters [Unknown]
